FAERS Safety Report 8878740 (Version 11)
Quarter: 2014Q2

REPORT INFORMATION
  Report Type: Spontaneous
  Country: CA (occurrence: CA)
  Receive Date: 20121026
  Receipt Date: 20140610
  Transmission Date: 20141212
  Serious: Yes (Other)
  Sender: FDA-Public Use
  Company Number: CA-ROCHE-1147843

PATIENT
  Age: 60 Year
  Sex: Male

DRUGS (13)
  1. XOLAIR [Suspect]
     Indication: ASTHMA
     Route: 058
     Dates: start: 20120810
  2. XOLAIR [Suspect]
     Route: 058
     Dates: start: 20130605
  3. XOLAIR [Suspect]
     Route: 058
     Dates: start: 20131121
  4. XOLAIR [Suspect]
     Route: 058
     Dates: start: 20131217
  5. XOLAIR [Suspect]
     Route: 058
     Dates: start: 20140103
  6. XOLAIR [Suspect]
     Route: 058
     Dates: end: 20140115
  7. XOLAIR [Suspect]
     Route: 058
     Dates: start: 20140129
  8. XOLAIR [Suspect]
     Route: 058
     Dates: start: 20140507
  9. XOLAIR [Suspect]
     Route: 058
     Dates: start: 20140604
  10. SALBUTAMOL [Concomitant]
  11. SYMBICORT [Concomitant]
  12. SINGULAIR [Concomitant]
  13. ALVESCO [Concomitant]

REACTIONS (7)
  - Asthma [Unknown]
  - Rash [Unknown]
  - Feeling abnormal [Unknown]
  - Cough [Unknown]
  - Nasopharyngitis [Unknown]
  - Asthenia [Unknown]
  - Blood pressure systolic increased [Not Recovered/Not Resolved]
